FAERS Safety Report 8571045-5 (Version None)
Quarter: 2012Q3

REPORT INFORMATION
  Report Type: 
  Country: None (occurrence: None)
  Receive Date: 20120730
  Receipt Date: 20120730
  Transmission Date: 20120928
  Serious: Yes (Hospitalization)
  Sender: FDA-Public Use
  Company Number: None

PATIENT
  Age: 57 Year
  Sex: Female
  Weight: 81.6475 kg

DRUGS (1)
  1. TRANSDERM SCOP [Suspect]
     Indication: MOTION SICKNESS
     Dosage: 1 PATCH BEHIND THE EST ONCE EVERY 3 DAYS TRANSDERMAL
     Route: 062
     Dates: start: 20120707, end: 20120724

REACTIONS (6)
  - HYPERVENTILATION [None]
  - SALIVARY HYPERSECRETION [None]
  - NAUSEA [None]
  - VOMITING [None]
  - DIZZINESS [None]
  - WITHDRAWAL SYNDROME [None]
